FAERS Safety Report 7971577-4 (Version None)
Quarter: 2011Q4

REPORT INFORMATION
  Report Type: 
  Country: None (occurrence: None)
  Receive Date: 20111212
  Receipt Date: 20111205
  Transmission Date: 20120403
  Serious: Yes (Other)
  Sender: FDA-Public Use
  Company Number: US-ABBOTT-11P-163-0881280-00

PATIENT
  Age: 69 Year
  Sex: Female

DRUGS (7)
  1. HUMIRA [Suspect]
     Indication: RHEUMATOID ARTHRITIS
  2. CALCIUM [Concomitant]
     Indication: MINERAL SUPPLEMENTATION
  3. LISINOPRIL [Concomitant]
     Indication: HYPERTENSION
  4. PREDNISONE [Concomitant]
     Dosage: ON ALTERNATE DAYS
  5. LEVOTHYROXINE SODIUM [Concomitant]
     Indication: HYPOTHYROIDISM
  6. PREDNISONE [Concomitant]
     Indication: PRODUCT USED FOR UNKNOWN INDICATION
  7. SIMVASTATIN [Concomitant]
     Indication: BLOOD CHOLESTEROL INCREASED

REACTIONS (3)
  - INCORRECT STORAGE OF DRUG [None]
  - INJECTION SITE PAIN [None]
  - ARTHROPATHY [None]
